FAERS Safety Report 17022903 (Version 5)
Quarter: 2021Q4

REPORT INFORMATION
  Report Type: Report from Study
  Country: US (occurrence: US)
  Receive Date: 20191112
  Receipt Date: 20211013
  Transmission Date: 20220303
  Serious: Yes (Other)
  Sender: FDA-Public Use
  Company Number: US-SHIRE-US201937532

PATIENT
  Age: 10 Year
  Sex: Male

DRUGS (6)
  1. ADVATE [Suspect]
     Active Substance: ANTIHEMOPHILIC FACTOR, HUMAN RECOMBINANT
     Indication: Product used for unknown indication
     Dosage: 1563 INTERNATIONAL UNIT
     Route: 042
  2. ADVATE [Suspect]
     Active Substance: ANTIHEMOPHILIC FACTOR, HUMAN RECOMBINANT
     Indication: Product used for unknown indication
     Dosage: 1563 INTERNATIONAL UNIT
     Route: 042
  3. ADVATE [Suspect]
     Active Substance: ANTIHEMOPHILIC FACTOR, HUMAN RECOMBINANT
     Indication: Product used for unknown indication
     Dosage: 1563 INTERNATIONAL UNIT
     Route: 042
  4. ADVATE [Suspect]
     Active Substance: ANTIHEMOPHILIC FACTOR, HUMAN RECOMBINANT
     Dosage: 2000 INTERNATIONAL UNIT
     Route: 065
  5. ADVATE [Suspect]
     Active Substance: ANTIHEMOPHILIC FACTOR, HUMAN RECOMBINANT
     Dosage: 2000 INTERNATIONAL UNIT
     Route: 065
  6. ADVATE [Suspect]
     Active Substance: ANTIHEMOPHILIC FACTOR, HUMAN RECOMBINANT
     Dosage: 2000 INTERNATIONAL UNIT
     Route: 065

REACTIONS (11)
  - Traumatic haemorrhage [Recovered/Resolved]
  - Contusion [Unknown]
  - Haemarthrosis [Recovered/Resolved]
  - Haemorrhage [Recovering/Resolving]
  - Gingival bleeding [Recovered/Resolved]
  - Injury [Recovered/Resolved]
  - Joint injury [Unknown]
  - Ligament sprain [Unknown]
  - Epiphyseal fracture [Recovered/Resolved]
  - Foot fracture [Recovering/Resolving]
  - Loose tooth [Unknown]

NARRATIVE: CASE EVENT DATE: 20191030
